FAERS Safety Report 23565971 (Version 1)
Quarter: 2024Q1

REPORT INFORMATION
  Report Type: Spontaneous
  Country: CA (occurrence: None)
  Receive Date: 20240225
  Receipt Date: 20240225
  Transmission Date: 20240410
  Serious: Yes (Disabling)
  Sender: FDA-Public Use
  Company Number: None

PATIENT
  Age: 34 Year
  Sex: Female
  Weight: 72 kg

DRUGS (8)
  1. OZEMPIC [Suspect]
     Active Substance: SEMAGLUTIDE
     Indication: Weight decreased
     Dosage: FREQUENCY : WEEKLY;?
     Route: 058
  2. ADAPALENE [Concomitant]
     Active Substance: ADAPALENE
  3. SPIRONOLACTONE [Concomitant]
     Active Substance: SPIRONOLACTONE
  4. LAMOTRIGINE [Concomitant]
     Active Substance: LAMOTRIGINE
  5. BUSPAR [Concomitant]
     Active Substance: BUSPIRONE HYDROCHLORIDE
  6. ATIVAN [Concomitant]
     Active Substance: LORAZEPAM
  7. Women^s multivitamin [Concomitant]
  8. FISH OIL [Concomitant]
     Active Substance: FISH OIL

REACTIONS (16)
  - Panic attack [None]
  - Dyspnoea [None]
  - Insomnia [None]
  - Heart rate increased [None]
  - Dizziness [None]
  - Presyncope [None]
  - Blood pressure increased [None]
  - Palpitations [None]
  - Fatigue [None]
  - Tachycardia [None]
  - Paraesthesia [None]
  - Arrhythmia [None]
  - Anxiety [None]
  - Depression [None]
  - Anxiety [None]
  - Dissociative disorder [None]

NARRATIVE: CASE EVENT DATE: 20231117
